FAERS Safety Report 10269600 (Version 1)
Quarter: 2014Q3

REPORT INFORMATION
  Report Type: Spontaneous
  Country: US (occurrence: US)
  Receive Date: 20140701
  Receipt Date: 20140701
  Transmission Date: 20150326
  Serious: Yes (Death)
  Sender: FDA-Public Use
  Company Number: US-ROCHE-1425645

PATIENT
  Age: 96 Year
  Sex: Female

DRUGS (8)
  1. ERIVEDGE [Suspect]
     Active Substance: VISMODEGIB
     Indication: SKIN CANCER
     Route: 048
     Dates: start: 20140107, end: 201404
  2. AMLODIPINE [Concomitant]
     Active Substance: AMLODIPINE BESYLATE
  3. TRAZODONE [Concomitant]
     Active Substance: TRAZODONE HYDROCHLORIDE
  4. OMEPRAZOLE. [Concomitant]
     Active Substance: OMEPRAZOLE
  5. CARAFATE [Concomitant]
     Active Substance: SUCRALFATE
  6. TYLENOL [Concomitant]
     Active Substance: ACETAMINOPHEN
  7. REQUIP [Concomitant]
     Active Substance: ROPINIROLE HYDROCHLORIDE
  8. LISINOPRIL. [Concomitant]
     Active Substance: LISINOPRIL

REACTIONS (1)
  - Death [Fatal]

NARRATIVE: CASE EVENT DATE: 20140523
